FAERS Safety Report 26102560 (Version 1)
Quarter: 2025Q4

REPORT INFORMATION
  Report Type: Spontaneous
  Country: CN (occurrence: CN)
  Receive Date: 20251128
  Receipt Date: 20251128
  Transmission Date: 20260118
  Serious: Yes (Hospitalization, Disabling, Other)
  Sender: GLAXOSMITHKLINE
  Company Number: CN-GSK-CN2025CHI149901

PATIENT
  Age: 13 Year
  Sex: Female
  Weight: 45 kg

DRUGS (10)
  1. LAMOTRIGINE [Suspect]
     Active Substance: LAMOTRIGINE
     Indication: Epilepsy
     Dosage: 1 DF, BID
  2. CLOBAZAM [Concomitant]
     Active Substance: CLOBAZAM
     Indication: Epilepsy
     Dosage: 1/4 TABLET AM + PM
  3. METHYLPREDNISOLONE SODIUM SUCCINATE [Concomitant]
     Active Substance: METHYLPREDNISOLONE SODIUM SUCCINATE
     Indication: Analgesic intervention supportive therapy
     Dosage: UNK
  4. ETANERCEPT [Concomitant]
     Active Substance: ETANERCEPT
     Indication: Immunomodulatory therapy
     Dosage: UNK, HORMONE REDUCED BY HALF TO 8MG/KG
  5. PREDNISONE [Concomitant]
     Active Substance: PREDNISONE
     Indication: Immunomodulatory therapy
     Dosage: 4 TABLETS EACH IN THE MORNING
  6. CETIRIZINE [Concomitant]
     Active Substance: CETIRIZINE HYDROCHLORIDE
     Indication: Hypersensitivity
     Dosage: UNK
  7. CEFTRIAXONE [Concomitant]
     Active Substance: CEFTRIAXONE
     Indication: Infection prophylaxis
  8. LORATADINE [Concomitant]
     Active Substance: LORATADINE
     Indication: Hypersensitivity
  9. CALCIUM [Concomitant]
     Active Substance: CALCIUM
     Indication: Immunomodulatory therapy
     Dosage: UNK
  10. POTASSIUM [Concomitant]
     Active Substance: POTASSIUM
     Indication: Immunomodulatory therapy
     Dosage: UNK

REACTIONS (11)
  - Toxic epidermal necrolysis [Recovering/Resolving]
  - Oropharyngeal pain [Recovering/Resolving]
  - Rash [Recovering/Resolving]
  - Hypersensitivity [Recovering/Resolving]
  - Condition aggravated [Recovering/Resolving]
  - Pain [Recovering/Resolving]
  - Erythema [Recovering/Resolving]
  - Aphthous ulcer [Recovering/Resolving]
  - Lip ulceration [Recovering/Resolving]
  - Infection [Recovering/Resolving]
  - Exfoliative rash [Recovering/Resolving]

NARRATIVE: CASE EVENT DATE: 20251028
